FAERS Safety Report 7176305-0 (Version None)
Quarter: 2010Q4

REPORT INFORMATION
  Report Type: 
  Country: None (occurrence: None)
  Receive Date: 20101220
  Receipt Date: 20101206
  Transmission Date: 20110411
  Serious: No
  Sender: FDA-Public Use
  Company Number: US-PFIZER INC-2010167359

PATIENT
  Age: 16 Year
  Sex: Female
  Weight: 47.166 kg

DRUGS (1)
  1. ADVIL [Suspect]
     Indication: HEADACHE
     Dosage: 2 TABS EVERY 2 TO 4 HOURS
     Route: 048
     Dates: start: 20101204, end: 20101204

REACTIONS (4)
  - ABDOMINAL PAIN UPPER [None]
  - DRUG INEFFECTIVE [None]
  - NAUSEA [None]
  - OVERDOSE [None]
